FAERS Safety Report 20873466 (Version 3)
Quarter: 2024Q4

REPORT INFORMATION
  Report Type: Report from Study
  Country: US (occurrence: US)
  Receive Date: 20220525
  Receipt Date: 20241212
  Transmission Date: 20250114
  Serious: Yes (Hospitalization, Other)
  Sender: TAKEDA
  Company Number: US-TAKEDA-US201940235

PATIENT
  Age: 47 Year
  Sex: Female

DRUGS (4)
  1. TEDUGLUTIDE [Suspect]
     Active Substance: TEDUGLUTIDE
     Indication: Short-bowel syndrome
     Dosage: 1.1 MILLIGRAM, QD
     Dates: start: 20190926
  2. TEDUGLUTIDE [Suspect]
     Active Substance: TEDUGLUTIDE
     Indication: Malabsorption
     Dosage: 1.1 MILLIGRAM, QD
     Dates: start: 20191028
  3. TEDUGLUTIDE [Suspect]
     Active Substance: TEDUGLUTIDE
     Dosage: 1.2 MILLIGRAM, QD
     Dates: start: 20191022
  4. TEDUGLUTIDE [Suspect]
     Active Substance: TEDUGLUTIDE
     Dosage: 0.15 MILLILITER, QD
     Dates: start: 202410

REACTIONS (20)
  - Device related sepsis [Unknown]
  - Weight decreased [Unknown]
  - Injection site bruising [Not Recovered/Not Resolved]
  - Drug ineffective [Unknown]
  - Injection site irritation [Unknown]
  - Muscle spasms [Unknown]
  - Product use issue [Unknown]
  - Back pain [Unknown]
  - Incorrect dose administered [Unknown]
  - Blood sodium decreased [Unknown]
  - Swelling face [Unknown]
  - Peripheral swelling [Unknown]
  - Gastrointestinal stoma output abnormal [Unknown]
  - Fluid retention [Unknown]
  - Injection site erythema [Unknown]
  - Abdominal distension [Not Recovered/Not Resolved]
  - Nausea [Recovered/Resolved]
  - Flatulence [Unknown]
  - Abdominal pain [Not Recovered/Not Resolved]
  - Gastrointestinal stoma complication [Unknown]

NARRATIVE: CASE EVENT DATE: 20191201
